FAERS Safety Report 6058337-9 (Version None)
Quarter: 2009Q1

REPORT INFORMATION
  Report Type: 
  Country: None (occurrence: None)
  Receive Date: 20090130
  Receipt Date: 20090126
  Transmission Date: 20090719
  Serious: Yes (Other)
  Sender: FDA-Public Use
  Company Number: PT-BRISTOL-MYERS SQUIBB COMPANY-14461156

PATIENT
  Age: 65 Year
  Sex: Female

DRUGS (3)
  1. REYATAZ [Suspect]
     Indication: HIV INFECTION
     Route: 048
     Dates: start: 20081105, end: 20081111
  2. TRUVADA [Suspect]
     Indication: HIV INFECTION
     Dates: start: 20081105
  3. NORVIR [Concomitant]
     Dates: start: 20081105

REACTIONS (6)
  - CONJUNCTIVAL DISORDER [None]
  - DYSPHAGIA [None]
  - DYSPHASIA [None]
  - DYSPNOEA [None]
  - RASH [None]
  - SKIN TOXICITY [None]
